FAERS Safety Report 10687273 (Version 2)
Quarter: 2015Q1

REPORT INFORMATION
  Report Type: Spontaneous
  Country: US (occurrence: None)
  Receive Date: 20141230
  Receipt Date: 20150204
  Transmission Date: 20150720
  Serious: Yes (Disabling, Other)
  Sender: FDA-Public Use
  Company Number: 2014-20994

PATIENT
  Age: 84 Year
  Sex: Female

DRUGS (11)
  1. ATORVASTATIN (ATORVASTATIN) [Concomitant]
     Active Substance: ATORVASTATIN
  2. LOSARTAN (LOSARTAN) [Concomitant]
     Active Substance: LOSARTAN
  3. PRESERVATION AREDS (ASCORBIC, BETACAROTENE, CUPRIC OXIDE, TOCOPHERYL ACETATE, ZINC OXIDE) [Concomitant]
  4. WARFARIN (WARFARIN) [Concomitant]
     Active Substance: WARFARIN
  5. METFORMIN [Concomitant]
     Active Substance: METFORMIN HYDROCHLORIDE
  6. METOPROLOL (METOPROLOL) [Concomitant]
     Active Substance: METOPROLOL
  7. SPIRONOLACTONE (SPIRONOLACTONE) [Concomitant]
     Active Substance: SPIRONOLACTONE
  8. FUROSEMIDE (FUROSEMIDE) [Concomitant]
     Active Substance: FUROSEMIDE
  9. LEVOTHYROXINE (LEVOTHYROXINE) [Concomitant]
     Active Substance: LEVOTHYROXINE
  10. EYLEA [Suspect]
     Active Substance: AFLIBERCEPT
     Indication: MACULAR DEGENERATION
     Dosage: 2 MG MILLIGRAM(S) , MONTHLY OS, INTRAOCULAR
     Route: 031
     Dates: start: 20130409, end: 20141211
  11. DIGOXIN (DIGOXIN) [Concomitant]
     Active Substance: DIGOXIN

REACTIONS (2)
  - Non-infectious endophthalmitis [None]
  - Blindness unilateral [None]

NARRATIVE: CASE EVENT DATE: 20141214
